FAERS Safety Report 21099756 (Version 1)
Quarter: 2022Q3

REPORT INFORMATION
  Report Type: Spontaneous
  Country: US (occurrence: US)
  Receive Date: 20220719
  Receipt Date: 20220719
  Transmission Date: 20221027
  Serious: No
  Sender: FDA-Public Use
  Company Number: US-BAYER-2022A101535

PATIENT
  Age: 37 Year
  Sex: Female

DRUGS (1)
  1. MIRENA [Suspect]
     Active Substance: LEVONORGESTREL
     Dosage: 20?G/DAY
     Route: 015
     Dates: start: 20220114, end: 20220321

REACTIONS (3)
  - Device expulsion [Recovered/Resolved]
  - Heavy menstrual bleeding [None]
  - Menstrual disorder [None]

NARRATIVE: CASE EVENT DATE: 20220321
